FAERS Safety Report 9466147 (Version 3)
Quarter: 2014Q2

REPORT INFORMATION
  Report Type: Spontaneous
  Country: US (occurrence: US)
  Receive Date: 20130820
  Receipt Date: 20140428
  Transmission Date: 20141212
  Serious: Yes (Death, Hospitalization)
  Sender: FDA-Public Use
  Company Number: US-B.I. PHARMACEUTICALS,INC./RIDGEFIELD-2013-BI-25633BP

PATIENT
  Age: 78 Year
  Sex: Female
  Weight: 65.77 kg

DRUGS (6)
  1. PRADAXA [Suspect]
     Indication: ANTICOAGULANT THERAPY
     Route: 065
     Dates: start: 20111103, end: 20120923
  2. PRADAXA [Suspect]
     Indication: ATRIAL FIBRILLATION
  3. CELEBREX [Concomitant]
     Route: 065
  4. DIGOXIN [Concomitant]
     Route: 065
  5. METOPROLOL [Concomitant]
     Route: 065
  6. FLUOXETINE [Concomitant]
     Route: 065

REACTIONS (1)
  - Subarachnoid haemorrhage [Fatal]
